FAERS Safety Report 8881976 (Version 1)
Quarter: 2012Q4

REPORT INFORMATION
  Report Type: 
  Country: US (occurrence: US)
  Receive Date: 20121101
  Receipt Date: 20121101
  Transmission Date: 20130627
  Serious: Yes (Death, Hospitalization, Other)
  Sender: FDA-Public Use
  Company Number: PHHY2012US099004

PATIENT
  Age: 28 Year
  Sex: Male

DRUGS (3)
  1. MEPERIDINE [Suspect]
     Indication: CHILLS
  2. BUSPIRONE [Interacting]
     Indication: DRUG THERAPY
  3. LINEZOLID [Interacting]

REACTIONS (7)
  - Death [Fatal]
  - Serotonin syndrome [Unknown]
  - Hyperthermia [Unknown]
  - Tachycardia [Unknown]
  - Hypertension [Unknown]
  - Renal impairment [Unknown]
  - Drug interaction [Unknown]
